FAERS Safety Report 7830440-X (Version None)
Quarter: 2011Q4

REPORT INFORMATION
  Report Type: 
  Country: None (occurrence: None)
  Receive Date: 20111021
  Receipt Date: 20111017
  Transmission Date: 20120403
  Serious: Yes (Hospitalization)
  Sender: FDA-Public Use
  Company Number: US-ACTELION-A-US2011-55425

PATIENT

DRUGS (1)
  1. TRACLEER [Suspect]
     Indication: PULMONARY ARTERIAL HYPERTENSION
     Dosage: UNK
     Route: 048
     Dates: start: 20100201

REACTIONS (5)
  - ATRIAL FIBRILLATION [None]
  - ANAEMIA [None]
  - BACTERAEMIA [None]
  - GASTRIC ULCER [None]
  - CHILLS [None]
